FAERS Safety Report 23987772 (Version 1)
Quarter: 2024Q2

REPORT INFORMATION
  Report Type: Report from Study
  Country: CA (occurrence: CA)
  Receive Date: 20240619
  Receipt Date: 20240619
  Transmission Date: 20240715
  Serious: Yes (Other)
  Sender: FDA-Public Use
  Company Number: CA-ABBVIE-5803673

PATIENT
  Age: 31 Year
  Sex: Male

DRUGS (1)
  1. SKYRIZI [Suspect]
     Active Substance: RISANKIZUMAB-RZAA
     Indication: Crohn^s disease
     Route: 058
     Dates: start: 20240126

REACTIONS (10)
  - Loss of consciousness [Unknown]
  - Headache [Unknown]
  - Unevaluable event [Not Recovered/Not Resolved]
  - Pyrexia [Unknown]
  - Heart rate increased [Unknown]
  - Throat irritation [Unknown]
  - Dry mouth [Unknown]
  - Saliva altered [Unknown]
  - Swollen tongue [Unknown]
  - Dizziness [Unknown]

NARRATIVE: CASE EVENT DATE: 20240101
